FAERS Safety Report 10101260 (Version 1)
Quarter: 2014Q2

REPORT INFORMATION
  Report Type: Spontaneous
  Country: US (occurrence: US)
  Receive Date: 20140424
  Receipt Date: 20140424
  Transmission Date: 20141212
  Serious: No
  Sender: FDA-Public Use
  Company Number: US-PFIZER INC-2014109153

PATIENT
  Sex: 0

DRUGS (1)
  1. VIAGRA [Suspect]
     Indication: SCLERODERMA
     Dosage: 150 MG, 1X/DAY

REACTIONS (3)
  - Off label use [Unknown]
  - Therapeutic response changed [Unknown]
  - Pre-existing condition improved [Unknown]
